FAERS Safety Report 5097487-0 (Version None)
Quarter: 2006Q3

REPORT INFORMATION
  Report Type: 
  Country: None (occurrence: None)
  Receive Date: 20060901
  Receipt Date: 20060823
  Transmission Date: 20061208
  Serious: Yes (Other)
  Sender: FDA-Public Use
  Company Number: 2006103018

PATIENT
  Age: 54 Year
  Sex: Female

DRUGS (3)
  1. CELEBREX [Suspect]
     Indication: DRUG USE FOR UNKNOWN INDICATION
     Dosage: 200 MG
  2. PEGINTERON ^SCHERING-PLOUGH^ (PEGINTERFERON ALFA-2B) [Suspect]
     Indication: HEPATITIS C
     Dosage: SUBCUTANEOUS
     Route: 058
     Dates: start: 20060316
  3. RIBAVIRIN [Suspect]
     Indication: HEPATITIS C
     Dosage: ORAL
     Route: 048
     Dates: start: 20060316

REACTIONS (7)
  - ALOPECIA [None]
  - DRY SKIN [None]
  - EXTRASYSTOLES [None]
  - HEART RATE DECREASED [None]
  - HYPERSENSITIVITY [None]
  - MUSCLE SPASMS [None]
  - PRURITUS [None]
